FAERS Safety Report 8737881 (Version 2)
Quarter: 2012Q4

REPORT INFORMATION
  Report Type: Report from Study
  Country: JP (occurrence: JP)
  Receive Date: 20120823
  Receipt Date: 20121107
  Transmission Date: 20130627
  Serious: Yes (Hospitalization)
  Sender: FDA-Public Use
  Company Number: JP-009507513-2012SP035864

PATIENT
  Age: 60 Year
  Sex: Male
  Weight: 61 kg

DRUGS (19)
  1. PEGINTRON [Suspect]
     Indication: HEPATITIS C
     Dosage: 1.5mcg/kg/week
     Route: 058
     Dates: start: 20120427, end: 20121005
  2. REBETOL [Suspect]
     Indication: HEPATITIS C
     Dosage: 800 mg, QD
     Route: 048
     Dates: start: 20120427, end: 20120531
  3. REBETOL [Suspect]
     Dosage: 600 mg, QD
     Route: 048
     Dates: start: 20120601, end: 20120712
  4. REBETOL [Suspect]
     Dosage: 400 mg, Once
     Route: 048
     Dates: start: 20120713, end: 20121011
  5. TELAVIC [Suspect]
     Indication: HEPATITIS C
     Route: 048
     Dates: start: 20120427, end: 20120531
  6. TELAVIC [Suspect]
     Dosage: 1500 mg, Once
     Route: 048
     Dates: start: 20120601, end: 20120719
  7. ANTIVIRAL (UNSPECIFIED) [Suspect]
     Indication: HEPATITIS C
     Dosage: 2250 mg, QD
     Route: 048
     Dates: start: 20120427, end: 20120531
  8. ANTIVIRAL (UNSPECIFIED) [Suspect]
     Dosage: 1500 mg, QD
     Route: 048
     Dates: start: 20120601
  9. ALLOPURINOL [Concomitant]
     Indication: HYPERURICAEMIA
     Dosage: 100 mg, QD
     Route: 048
     Dates: end: 20120501
  10. FEBURIC [Concomitant]
     Indication: HYPERURICAEMIA
     Dosage: 10 mg, QD
     Route: 048
     Dates: start: 20120502, end: 20120621
  11. FEBURIC [Concomitant]
     Indication: HYPERURICAEMIA
     Route: 048
     Dates: start: 20120502, end: 20120621
  12. CALONAL [Concomitant]
     Indication: PRODUCT USED FOR UNKNOWN INDICATION
     Dosage: CALONAL 200
     Route: 048
     Dates: start: 20120427
  13. ESPO [Concomitant]
     Indication: PRODUCT USED FOR UNKNOWN INDICATION
     Dosage: DOSE: 12000 UNITS AS NEEDED
     Route: 058
     Dates: start: 20120518
  14. ESPO [Concomitant]
     Indication: PRODUCT USED FOR UNKNOWN INDICATION
     Dosage: DOSE: 24000 UNITS AS NEEDED
     Route: 058
     Dates: start: 20120525
  15. ELPINAN [Concomitant]
     Indication: PRODUCT USED FOR UNKNOWN INDICATION
     Dosage: DOSE: 20 INTO 2 TABLETS
     Route: 065
     Dates: start: 20120604
  16. ELPINAN [Concomitant]
     Route: 048
  17. MK-9355 [Concomitant]
     Route: 048
     Dates: end: 20120501
  18. FULMETA [Concomitant]
     Dosage: FULMETA LOTION
     Route: 051
     Dates: start: 20120506
  19. FULMETA [Concomitant]
     Indication: PRODUCT USED FOR UNKNOWN INDICATION
     Dosage: 5 g, PRN
     Route: 061
     Dates: start: 20120608

REACTIONS (8)
  - Decreased appetite [Recovering/Resolving]
  - Pyrexia [None]
  - Hyperuricaemia [None]
  - Drug eruption [None]
  - Pruritus [None]
  - Rash [None]
  - Anaemia [None]
  - Weight decreased [None]
